FAERS Safety Report 18576152 (Version 1)
Quarter: 2020Q4

REPORT INFORMATION
  Report Type: Spontaneous
  Country: JP (occurrence: JP)
  Receive Date: 20201203
  Receipt Date: 20201203
  Transmission Date: 20210114
  Serious: Yes (Hospitalization, Other)
  Sender: FDA-Public Use
  Company Number: JP-ASTRAZENECA-2020SF57750

PATIENT
  Age: 79 Year
  Sex: Male

DRUGS (1)
  1. IMFINZI [Suspect]
     Active Substance: DURVALUMAB
     Indication: NON-SMALL CELL LUNG CANCER
     Route: 041

REACTIONS (5)
  - Pneumothorax [Unknown]
  - Radiation pneumonitis [Unknown]
  - Pneumonia bacterial [Unknown]
  - Pulmonary necrosis [Unknown]
  - Aspergillus infection [Unknown]
